FAERS Safety Report 16780340 (Version 1)
Quarter: 2019Q3

REPORT INFORMATION
  Report Type: Spontaneous
  Country: US (occurrence: US)
  Receive Date: 20190716
  Receipt Date: 20190716
  Transmission Date: 20191005
  Serious: Yes (Hospitalization)
  Sender: FDA-Public Use
  Company Number: None

PATIENT
  Age: 80 Year
  Sex: Female

DRUGS (18)
  1. PYRIDOSTIGMINE [Concomitant]
     Active Substance: PYRIDOSTIGMINE
  2. MONTELUKAST [Concomitant]
     Active Substance: MONTELUKAST SODIUM
  3. K-TAB [Concomitant]
     Active Substance: POTASSIUM CHLORIDE
  4. MAGNESIUM OXIDE. [Concomitant]
     Active Substance: MAGNESIUM OXIDE
  5. AMBRISENTAN 10MG TABLETS 30/BO: 10MG [Suspect]
     Active Substance: AMBRISENTAN
     Indication: PULMONARY ARTERIAL HYPERTENSION
     Route: 048
     Dates: start: 201707
  6. GABAPENTIN. [Concomitant]
     Active Substance: GABAPENTIN
  7. DILTIAZEM. [Concomitant]
     Active Substance: DILTIAZEM
  8. FERROUS SULFATE. [Concomitant]
     Active Substance: FERROUS SULFATE
  9. MINERALS [Concomitant]
     Active Substance: MINERALS
  10. FAMOTIDINE. [Concomitant]
     Active Substance: FAMOTIDINE
  11. WARFARIN [Concomitant]
     Active Substance: WARFARIN
  12. DIGOXIN. [Concomitant]
     Active Substance: DIGOXIN
  13. LASIX [Concomitant]
     Active Substance: FUROSEMIDE
  14. CALCIUM CARBONATE-VIT D3 [Concomitant]
  15. ADVAIR DISKUS [Concomitant]
     Active Substance: FLUTICASONE PROPIONATE\SALMETEROL XINAFOATE
  16. ASTELIN [Concomitant]
     Active Substance: AZELASTINE HYDROCHLORIDE
  17. TADALAFIL. [Concomitant]
     Active Substance: TADALAFIL
  18. ATROVENT [Concomitant]
     Active Substance: IPRATROPIUM BROMIDE

REACTIONS (6)
  - Unevaluable event [None]
  - Pneumonia [None]
  - Decreased appetite [None]
  - Haematoma [None]
  - Limb injury [None]
  - Dyspnoea [None]

NARRATIVE: CASE EVENT DATE: 20190630
